FAERS Safety Report 7608255-7 (Version None)
Quarter: 2011Q3

REPORT INFORMATION
  Report Type: 
  Country: None (occurrence: None)
  Receive Date: 20110714
  Receipt Date: 20110701
  Transmission Date: 20111222
  Serious: Yes (Hospitalization, Other)
  Sender: FDA-Public Use
  Company Number: US-AMGEN-USASP2011030690

PATIENT
  Age: 70 Year
  Sex: Female

DRUGS (1)
  1. ENBREL [Suspect]
     Indication: PSORIATIC ARTHROPATHY
     Dosage: 50 MG, 2 TIMES/WK
     Dates: start: 20090107, end: 20101001

REACTIONS (10)
  - PNEUMONIA [None]
  - SWELLING [None]
  - BREAST CANCER [None]
  - VOMITING [None]
  - PSORIASIS [None]
  - PSORIATIC ARTHROPATHY [None]
  - NAUSEA [None]
  - HYPOPHAGIA [None]
  - PAIN [None]
  - MYCOBACTERIUM TUBERCULOSIS COMPLEX TEST POSITIVE [None]
